FAERS Safety Report 12311680 (Version 2)
Quarter: 2016Q3

REPORT INFORMATION
  Report Type: Spontaneous
  Country: US (occurrence: US)
  Receive Date: 20160427
  Receipt Date: 20160701
  Transmission Date: 20161109
  Serious: Yes (Other)
  Sender: FDA-Public Use
  Company Number: US-BAYER-2016-081579

PATIENT
  Age: 48 Year
  Sex: Female
  Weight: 66.67 kg

DRUGS (1)
  1. MIRENA [Suspect]
     Active Substance: LEVONORGESTREL
     Indication: CONTRACEPTION
     Dosage: 20 MCG/24HR, CONT
     Route: 015
     Dates: start: 20160407, end: 20160421

REACTIONS (3)
  - Uterine perforation [Recovered/Resolved]
  - Device deployment issue [None]
  - Device use issue [None]

NARRATIVE: CASE EVENT DATE: 201604
